FAERS Safety Report 13025000 (Version 1)
Quarter: 2016Q4

REPORT INFORMATION
  Report Type: Spontaneous
  Country: GB (occurrence: GB)
  Receive Date: 20161213
  Receipt Date: 20161213
  Transmission Date: 20170207
  Serious: Yes (Other)
  Sender: FDA-Public Use
  Company Number: PHHY2016GB165869

PATIENT
  Age: 30 Year
  Sex: Female
  Weight: 63 kg

DRUGS (8)
  1. SERTRALINE [Suspect]
     Active Substance: SERTRALINE HYDROCHLORIDE
     Dosage: 150MG - STARTED WITH 50MG, UP TO 100 AFTER 1 WEEK, AND UP TO 150 AFTER ANOTHER WEEK
     Route: 048
     Dates: start: 20160929
  2. FRAGMIN [Concomitant]
     Active Substance: DALTEPARIN SODIUM
     Indication: PRODUCT USED FOR UNKNOWN INDICATION
     Route: 065
  3. MIRTAZAPINE. [Concomitant]
     Active Substance: MIRTAZAPINE
     Indication: PRODUCT USED FOR UNKNOWN INDICATION
     Route: 065
  4. PARACETAMOL [Concomitant]
     Active Substance: ACETAMINOPHEN
     Indication: PRODUCT USED FOR UNKNOWN INDICATION
     Route: 065
  5. SERTRALINE [Suspect]
     Active Substance: SERTRALINE HYDROCHLORIDE
     Indication: DEPRESSION
     Dosage: 150MG - STARTED WITH 50MG, UP TO 100 AFTER 1 WEEK, AND UP TO 150 AFTER ANOTHER WEEK
     Route: 048
  6. IBUPROFAN [Concomitant]
     Indication: PRODUCT USED FOR UNKNOWN INDICATION
     Route: 065
  7. SERTRALINE [Suspect]
     Active Substance: SERTRALINE HYDROCHLORIDE
     Dosage: 150MG - STARTED WITH 50MG, UP TO 100 AFTER 1 WEEK, AND UP TO 150 AFTER ANOTHER WEEK
     Route: 048
  8. CODEINE [Concomitant]
     Active Substance: CODEINE
     Indication: PRODUCT USED FOR UNKNOWN INDICATION
     Route: 065

REACTIONS (6)
  - Dizziness [Recovered/Resolved]
  - Anorgasmia [Not Recovered/Not Resolved]
  - Nausea [Recovered/Resolved]
  - Libido decreased [Not Recovered/Not Resolved]
  - Decreased appetite [Recovered/Resolved]
  - Insomnia [Recovered/Resolved]

NARRATIVE: CASE EVENT DATE: 20161006
